FAERS Safety Report 11492270 (Version 2)
Quarter: 2015Q3

REPORT INFORMATION
  Report Type: Report from Study
  Country: DE (occurrence: DE)
  Receive Date: 20150910
  Receipt Date: 20150918
  Transmission Date: 20151125
  Serious: Yes (Death)
  Sender: FDA-Public Use
  Company Number: DE-ABBVIE-15P-062-1460398-00

PATIENT
  Age: 78 Year
  Sex: Male

DRUGS (1)
  1. DUODOPA [Suspect]
     Active Substance: CARBIDOPA\LEVODOPA
     Indication: PARKINSON^S DISEASE
     Dosage: MD 12.5ML, CRD 3ML/H, ED 0.5ML
     Route: 050
     Dates: start: 20150831, end: 20150907

REACTIONS (5)
  - Ileus [Fatal]
  - Pulmonary embolism [Fatal]
  - Peritonitis [Fatal]
  - Sudden death [Fatal]
  - Septic shock [Fatal]

NARRATIVE: CASE EVENT DATE: 20150907
